FAERS Safety Report 10716532 (Version 3)
Quarter: 2015Q1

REPORT INFORMATION
  Report Type: Spontaneous
  Country: US (occurrence: US)
  Receive Date: 20150116
  Receipt Date: 20150219
  Transmission Date: 20150721
  Serious: Yes (Hospitalization, Other)
  Sender: FDA-Public Use
  Company Number: US-BAYER-2015-005239

PATIENT
  Age: 19 Year
  Sex: Female
  Weight: 92.97 kg

DRUGS (2)
  1. MIRENA [Suspect]
     Active Substance: LEVONORGESTREL
     Indication: CONTRACEPTION
     Dosage: 20 MCG/24HR, CONT
     Route: 015
     Dates: start: 20120108, end: 20121219
  2. ALBUTEROL. [Concomitant]
     Active Substance: ALBUTEROL
     Indication: ASTHMA
     Dosage: UNK
     Dates: start: 1998

REACTIONS (7)
  - Ectopic pregnancy with contraceptive device [None]
  - Drug ineffective [None]
  - Pelvic pain [None]
  - Injury [None]
  - Off label use [None]
  - Embedded device [None]
  - Ruptured ectopic pregnancy [None]

NARRATIVE: CASE EVENT DATE: 2012
